FAERS Safety Report 16323819 (Version 2)
Quarter: 2019Q2

REPORT INFORMATION
  Report Type: Report from Study
  Country: MX (occurrence: MX)
  Receive Date: 20190517
  Receipt Date: 20190529
  Transmission Date: 20190711
  Serious: Yes (Hospitalization, Other)
  Sender: FDA-Public Use
  Company Number: PHHY2019MX112095

PATIENT
  Sex: Female
  Weight: 48 kg

DRUGS (2)
  1. TRAJENTA [Concomitant]
     Active Substance: LINAGLIPTIN
     Indication: DIABETES MELLITUS
     Dosage: UNK
     Route: 065
  2. FEMARA [Suspect]
     Active Substance: LETROZOLE
     Indication: PROPHYLAXIS
     Dosage: 2.5 MG, QD
     Route: 048

REACTIONS (4)
  - Renal impairment [Recovered/Resolved]
  - Product use in unapproved indication [Unknown]
  - Fall [Recovered/Resolved]
  - Hip fracture [Recovered/Resolved]
